FAERS Safety Report 4514113-7 (Version None)
Quarter: 2004Q4

REPORT INFORMATION
  Report Type: 
  Country: None (occurrence: None)
  Receive Date: 20041124
  Receipt Date: 20041115
  Transmission Date: 20050328
  Serious: Yes (Hospitalization)
  Sender: FDA-Public Use
  Company Number: 2004-09-0281

PATIENT
  Age: 61 Year
  Sex: Male

DRUGS (4)
  1. INTRON A [Suspect]
     Indication: HEPATITIS C
     Dosage: 6 MIU INTRAMUSCULAR
     Route: 030
     Dates: start: 20040417, end: 20040903
  2. REBETOL [Suspect]
     Indication: HEPATITIS C
     Dosage: SEE IMAGE ORAL
     Route: 048
     Dates: start: 20040417, end: 20040704
  3. REBETOL [Suspect]
     Indication: HEPATITIS C
     Dosage: SEE IMAGE ORAL
     Route: 048
     Dates: start: 20040417, end: 20040903
  4. REBETOL [Suspect]
     Indication: HEPATITIS C
     Dosage: SEE IMAGE ORAL
     Route: 048
     Dates: start: 20040705, end: 20040903

REACTIONS (2)
  - BLADDER CANCER [None]
  - HAEMATURIA [None]
